FAERS Safety Report 5896337-X (Version None)
Quarter: 2008Q3

REPORT INFORMATION
  Report Type: 
  Country: None (occurrence: None)
  Receive Date: 20080924
  Receipt Date: 20070925
  Transmission Date: 20090109
  Serious: Yes (Other)
  Sender: FDA-Public Use
  Company Number: US-ASTRAZENECA-2007UW21203

PATIENT
  Age: 24577 Day
  Sex: Male

DRUGS (4)
  1. SEROQUEL [Suspect]
     Indication: BIPOLAR DISORDER
     Route: 048
     Dates: start: 20010206
  2. DEPAKOTE ER [Concomitant]
     Indication: BIPOLAR DISORDER
     Route: 048
     Dates: start: 20010206
  3. LAMICTAL [Concomitant]
     Indication: BIPOLAR DISORDER
     Route: 048
     Dates: start: 20010206
  4. EFFEXOR XR [Concomitant]
     Indication: BIPOLAR I DISORDER
     Route: 048
     Dates: start: 20010206

REACTIONS (1)
  - TARDIVE DYSKINESIA [None]
